FAERS Safety Report 11174180 (Version 12)
Quarter: 2018Q1

REPORT INFORMATION
  Report Type: Report from Study
  Country: US (occurrence: US)
  Receive Date: 20150609
  Receipt Date: 20180312
  Transmission Date: 20180508
  Serious: Yes (Hospitalization, Other)
  Sender: FDA-Public Use
  Company Number: US-SA-2015SA078275

PATIENT
  Age: 38 Year
  Sex: Male

DRUGS (2)
  1. LEMTRADA [Suspect]
     Active Substance: ALEMTUZUMAB
     Indication: MULTIPLE SCLEROSIS
     Route: 041
     Dates: start: 20150601, end: 20150605
  2. LEMTRADA [Suspect]
     Active Substance: ALEMTUZUMAB
     Indication: MULTIPLE SCLEROSIS
     Route: 041
     Dates: start: 20160606, end: 20160608

REACTIONS (23)
  - Cough [Recovered/Resolved]
  - Rash [Not Recovered/Not Resolved]
  - Dry skin [Not Recovered/Not Resolved]
  - Hypopnoea [Recovered/Resolved]
  - Fatigue [Recovering/Resolving]
  - Pyrexia [Recovered/Resolved]
  - Neuropathy peripheral [Recovering/Resolving]
  - Erythema [Recovered/Resolved]
  - Myalgia [Not Recovered/Not Resolved]
  - Dyspnoea [Not Recovered/Not Resolved]
  - Erythema [Recovering/Resolving]
  - Gait inability [Recovering/Resolving]
  - Temperature intolerance [Not Recovered/Not Resolved]
  - Dysphonia [Not Recovered/Not Resolved]
  - Therapeutic response decreased [Unknown]
  - Wheezing [Recovered/Resolved]
  - Chest discomfort [Not Recovered/Not Resolved]
  - Pregnancy of partner [Unknown]
  - Infusion related reaction [Unknown]
  - Multiple sclerosis relapse [Unknown]
  - Weight increased [Recovering/Resolving]
  - Pain in extremity [Recovering/Resolving]
  - Abscess [Recovered/Resolved]

NARRATIVE: CASE EVENT DATE: 2015
